FAERS Safety Report 4714238-7 (Version None)
Quarter: 2005Q3

REPORT INFORMATION
  Report Type: 
  Country: None (occurrence: None)
  Receive Date: 20050714
  Receipt Date: 20050705
  Transmission Date: 20060218
  Serious: Yes (Other)
  Sender: FDA-Public Use
  Company Number: BE-JNJFOC-20050700922

PATIENT
  Age: 59 Year
  Sex: Female

DRUGS (1)
  1. INFLIXIMAB [Suspect]
     Indication: RHEUMATOID ARTHRITIS
     Dosage: WEEK 0,2 AND 6 THEN EVERY 8 WEEKS
     Route: 042

REACTIONS (2)
  - PLEURISY [None]
  - TUBERCULOSIS [None]
